FAERS Safety Report 7329201-X (Version None)
Quarter: 2011Q1

REPORT INFORMATION
  Report Type: 
  Country: None (occurrence: None)
  Receive Date: 20110303
  Receipt Date: 20110224
  Transmission Date: 20110831
  Serious: Yes (Hospitalization, Disabling)
  Sender: FDA-Public Use
  Company Number: A0892642A

PATIENT
  Age: 57 Year
  Sex: Female

DRUGS (11)
  1. AVANDAMET [Suspect]
     Route: 048
     Dates: start: 20050222, end: 20080502
  2. ATENOLOL [Concomitant]
  3. COZAAR [Concomitant]
  4. INSULIN [Concomitant]
  5. CLONAZEPAM [Concomitant]
  6. AVANDIA [Suspect]
     Indication: DIABETES MELLITUS
     Dosage: 8MG TWICE PER DAY
     Route: 048
     Dates: start: 20011024, end: 20070101
  7. AVANDARYL [Suspect]
     Route: 048
     Dates: start: 20060426, end: 20060524
  8. CYMBALTA [Concomitant]
  9. VYTORIN [Concomitant]
  10. ABILIFY [Concomitant]
  11. OMEPRAZOLE [Concomitant]

REACTIONS (2)
  - CARDIAC FAILURE CONGESTIVE [None]
  - RENAL FAILURE CHRONIC [None]
